FAERS Safety Report 4346731-3 (Version None)
Quarter: 2004Q1

REPORT INFORMATION
  Report Type: 
  Country: None (occurrence: None)
  Receive Date: 20040329
  Receipt Date: 20040128
  Transmission Date: 20041129
  Serious: No
  Sender: FDA-Public Use
  Company Number: USA040157837

PATIENT
  Age: 19 Year
  Sex: Male
  Weight: 59 kg

DRUGS (2)
  1. STRATTERA [Suspect]
     Indication: ATTENTION DEFICIT/HYPERACTIVITY DISORDER
     Dosage: 80 MG/DAY
  2. PROZAC [Suspect]
     Dosage: 60 MG/DAY

REACTIONS (3)
  - DRUG INTERACTION [None]
  - HEART RATE INCREASED [None]
  - HEART RATE IRREGULAR [None]
